FAERS Safety Report 5908054-8 (Version None)
Quarter: 2008Q4

REPORT INFORMATION
  Report Type: 
  Country: None (occurrence: None)
  Receive Date: 20081003
  Receipt Date: 20080922
  Transmission Date: 20090506
  Serious: Yes (Other)
  Sender: FDA-Public Use
  Company Number: US-PFIZER INC-2008080173

PATIENT
  Sex: Male
  Weight: 104.3 kg

DRUGS (3)
  1. CELEBREX [Suspect]
     Indication: ARTHRITIS
     Dates: start: 20000101
  2. PAXIL [Concomitant]
  3. MULTI-VITAMINS [Concomitant]

REACTIONS (2)
  - NEPHROLITHIASIS [None]
  - RASH [None]
